FAERS Safety Report 15334638 (Version 1)
Quarter: 2018Q3

REPORT INFORMATION
  Report Type: Spontaneous
  Country: US (occurrence: US)
  Receive Date: 20180827
  Receipt Date: 20180827
  Transmission Date: 20181010
  Serious: Yes (Other)
  Sender: FDA-Public Use
  Company Number: None

PATIENT
  Age: 53 Year
  Sex: Female
  Weight: 83.25 kg

DRUGS (4)
  1. VENLAFAXINE 75 MG ER [Suspect]
     Active Substance: VENLAFAXINE HYDROCHLORIDE
     Indication: DEPRESSION
     Dosage: ?          QUANTITY:1 CAPSULE(S);?
     Route: 048
     Dates: start: 20180726, end: 20180827
  2. TURMERIC [Concomitant]
     Active Substance: HERBALS\TURMERIC
  3. VENLAFAXINE 75 MG ER [Suspect]
     Active Substance: VENLAFAXINE HYDROCHLORIDE
     Indication: ANXIETY
     Dosage: ?          QUANTITY:1 CAPSULE(S);?
     Route: 048
     Dates: start: 20180726, end: 20180827
  4. VITAMIN D [Concomitant]
     Active Substance: CHOLECALCIFEROL

REACTIONS (9)
  - Suicidal ideation [None]
  - Nightmare [None]
  - Insomnia [None]
  - Anorgasmia [None]
  - Abdominal pain [None]
  - Libido decreased [None]
  - Constipation [None]
  - Weight increased [None]
  - Depression [None]

NARRATIVE: CASE EVENT DATE: 20180825
